FAERS Safety Report 6832314-X (Version None)
Quarter: 2010Q3

REPORT INFORMATION
  Report Type: 
  Country: None (occurrence: None)
  Receive Date: 20100712
  Receipt Date: 20100702
  Transmission Date: 20110219
  Serious: Yes (Other)
  Sender: FDA-Public Use
  Company Number: BE-ELI_LILLY_AND_COMPANY-BE201006007163

PATIENT
  Sex: Female
  Weight: 60 kg

DRUGS (6)
  1. ALIMTA [Suspect]
     Indication: LUNG NEOPLASM
     Dosage: 500 MG/M2, ONCE
     Route: 042
     Dates: start: 20100602
  2. ALIMTA [Suspect]
     Dosage: UNK, UNKNOWN
  3. CORTICOSTEROIDS [Concomitant]
     Indication: PREMEDICATION
  4. LITICAN [Concomitant]
     Indication: ANTIEMETIC SUPPORTIVE CARE
     Route: 042
     Dates: start: 20100602
  5. ZOFRAN [Concomitant]
  6. MEDROL [Concomitant]
     Route: 048
     Dates: start: 20100603, end: 20100604

REACTIONS (2)
  - DERMATITIS BULLOUS [None]
  - RASH ERYTHEMATOUS [None]
